FAERS Safety Report 20983221 (Version 1)
Quarter: 2022Q2

REPORT INFORMATION
  Report Type: Spontaneous
  Country: GB (occurrence: GB)
  Receive Date: 20220620
  Receipt Date: 20220620
  Transmission Date: 20220721
  Serious: Yes (Hospitalization)
  Sender: FDA-Public Use
  Company Number: GB-MHRA-MED-202206112251209910-HBNCW

PATIENT
  Sex: Female

DRUGS (4)
  1. METRONIDAZOLE [Interacting]
     Active Substance: METRONIDAZOLE
     Indication: Pericoronitis
     Dosage: 200 MG, TID
     Route: 065
     Dates: start: 20220503
  2. METRONIDAZOLE [Interacting]
     Active Substance: METRONIDAZOLE
     Indication: Adverse drug reaction
  3. BENZYDAMINE [Interacting]
     Active Substance: BENZYDAMINE
     Indication: Pericoronitis
     Dosage: UNK, PRN
     Route: 065
     Dates: start: 20220503
  4. BENZYDAMINE [Interacting]
     Active Substance: BENZYDAMINE
     Indication: Adverse drug reaction

REACTIONS (1)
  - Conversion disorder [Unknown]
